FAERS Safety Report 21099093 (Version 1)
Quarter: 2022Q3

REPORT INFORMATION
  Report Type: Spontaneous
  Country: BE (occurrence: BE)
  Receive Date: 20220719
  Receipt Date: 20220719
  Transmission Date: 20221026
  Serious: Yes (Other)
  Sender: FDA-Public Use
  Company Number: BE-002147023-NVSC2022BE151596

PATIENT
  Sex: Female

DRUGS (3)
  1. IMATINIB [Suspect]
     Active Substance: IMATINIB
     Indication: Chronic myeloid leukaemia
     Dosage: 400 MILLIGRAM (400 MG)
     Route: 065
     Dates: start: 202104, end: 202105
  2. IMATINIB [Suspect]
     Active Substance: IMATINIB
     Dosage: 300 MILLIGRAM (300 MG)
     Route: 065
     Dates: start: 202105
  3. BOSULIF [Concomitant]
     Active Substance: BOSUTINIB MONOHYDRATE
     Indication: Product used for unknown indication
     Dosage: UNK (START DATE: 08-FEB-2022)
     Route: 065
     Dates: end: 202205

REACTIONS (8)
  - Thrombocytopenia [Recovered/Resolved]
  - Neutropenia [Unknown]
  - General physical health deterioration [Recovered/Resolved]
  - Oedema peripheral [Unknown]
  - Eyelid oedema [Unknown]
  - Diarrhoea [Unknown]
  - Vomiting [Recovered/Resolved]
  - Anaemia [Recovered/Resolved]

NARRATIVE: CASE EVENT DATE: 20210501
